FAERS Safety Report 5339720-3 (Version None)
Quarter: 2007Q2

REPORT INFORMATION
  Report Type: 
  Country: None (occurrence: None)
  Receive Date: 20070404
  Receipt Date: 20061201
  Transmission Date: 20071010
  Serious: Yes (Other)
  Sender: FDA-Public Use
  Company Number: 2006111229

PATIENT
  Sex: Male

DRUGS (3)
  1. GEODON [Suspect]
     Dosage: 80 MG, 2 IN1 D
  2. CLONZAPIN (CLONAZEPAM) [Concomitant]
  3. ALL OTHER THERAPEUTIC PRODUCTS (ALL OTHER THERAPEUTIC PRODUCTS) [Concomitant]

REACTIONS (1)
  - BRADYCARDIA [None]
